FAERS Safety Report 8916777 (Version 2)
Quarter: 2012Q4

REPORT INFORMATION
  Report Type: 
  Country: JP (occurrence: JP)
  Receive Date: 20121120
  Receipt Date: 20121206
  Transmission Date: 20130627
  Serious: Yes (Other)
  Sender: FDA-Public Use
  Company Number: JP-009507513-1211JPN007050

PATIENT
  Age: 40 Year
  Sex: Male

DRUGS (1)
  1. JANUVIA TABLETS 100MG [Suspect]
     Indication: DIABETES MELLITUS
     Dosage: Dosage is uncertain during a day
     Route: 048

REACTIONS (3)
  - Loss of consciousness [Recovering/Resolving]
  - Loss of consciousness [Recovering/Resolving]
  - Loss of consciousness [Recovering/Resolving]
